FAERS Safety Report 13182837 (Version 1)
Quarter: 2017Q1

REPORT INFORMATION
  Report Type: Spontaneous
  Country: FI (occurrence: FI)
  Receive Date: 20170203
  Receipt Date: 20170203
  Transmission Date: 20170428
  Serious: Yes (Other)
  Sender: FDA-Public Use
  Company Number: FI-AMGEN-FINSP2017015928

PATIENT
  Age: 79 Year
  Sex: Male

DRUGS (3)
  1. BONDRONAT [Suspect]
     Active Substance: IBANDRONIC ACID
     Indication: METASTASES TO BONE
     Dosage: UNK
     Route: 042
     Dates: start: 2010, end: 2012
  2. XGEVA [Suspect]
     Active Substance: DENOSUMAB
     Indication: METASTASES TO BONE
     Dosage: UNK
     Route: 065
     Dates: start: 201204
  3. BONEFOS [Suspect]
     Active Substance: CLODRONATE DISODIUM
     Indication: METASTASES TO BONE
     Route: 065

REACTIONS (1)
  - Osteonecrosis of jaw [Unknown]

NARRATIVE: CASE EVENT DATE: 201511
